FAERS Safety Report 8804949 (Version 2)
Quarter: 2015Q1

REPORT INFORMATION
  Report Type: Report from Study
  Country: US (occurrence: US)
  Receive Date: 20120924
  Receipt Date: 20150316
  Transmission Date: 20150721
  Serious: Yes (Death)
  Sender: FDA-Public Use
  Company Number: US-ROCHE-1103450

PATIENT
  Sex: Female
  Weight: 40.86 kg

DRUGS (8)
  1. BENADRYL [Concomitant]
     Active Substance: DIPHENHYDRAMINE HYDROCHLORIDE
  2. IXEMPRA [Concomitant]
     Active Substance: IXABEPILONE
     Dosage: 40 AND 60 MG
     Route: 065
     Dates: start: 20090324, end: 20090720
  3. DURAGESIC [Concomitant]
     Active Substance: FENTANYL
  4. ZANTAC [Concomitant]
     Active Substance: RANITIDINE HYDROCHLORIDE
  5. GEMZAR [Concomitant]
     Active Substance: GEMCITABINE HYDROCHLORIDE
     Route: 065
     Dates: start: 20040308, end: 20091006
  6. VICODIN [Concomitant]
     Active Substance: ACETAMINOPHEN\HYDROCODONE BITARTRATE
  7. AVASTIN [Suspect]
     Active Substance: BEVACIZUMAB
     Indication: BREAST CANCER FEMALE
     Dosage: 4 DOSES OF  720 MG AND 2 DOSES OF 480 MG; 50 MG/KG
     Route: 065
     Dates: start: 20080407, end: 20091006
  8. ITRACONAZOLE. [Concomitant]
     Active Substance: ITRACONAZOLE

REACTIONS (8)
  - Weight decreased [Unknown]
  - Aspergillus infection [Unknown]
  - Pain [Unknown]
  - Rhinorrhoea [Unknown]
  - Disease progression [Fatal]
  - Skin exfoliation [Unknown]
  - Burning sensation [Unknown]
  - Constipation [Unknown]
